FAERS Safety Report 5588570-1 (Version None)
Quarter: 2008Q1

REPORT INFORMATION
  Report Type: 
  Country: None (occurrence: None)
  Receive Date: 20080111
  Receipt Date: 20071127
  Transmission Date: 20080703
  Serious: No
  Sender: FDA-Public Use
  Company Number: US-BRISTOL-MYERS SQUIBB COMPANY-13995592

PATIENT
  Age: 19 Year
  Sex: Female
  Weight: 38 kg

DRUGS (5)
  1. ABILIFY [Suspect]
     Indication: BIPOLAR DISORDER
     Dosage: DEC 2005 10MG WHICH WAS INCREASED TO 20MG ABOUT YR AGO.
     Route: 048
  2. TRAZODONE HCL [Suspect]
     Indication: DEPRESSION
     Route: 048
  3. COMBIVIR [Concomitant]
  4. VIREAD [Concomitant]
  5. KALETRA [Concomitant]

REACTIONS (4)
  - BALANCE DISORDER [None]
  - SOMNOLENCE [None]
  - STARING [None]
  - TREMOR [None]
